FAERS Safety Report 13652127 (Version 1)
Quarter: 2017Q2

REPORT INFORMATION
  Report Type: Report from Study
  Country: PL (occurrence: PL)
  Receive Date: 20170614
  Receipt Date: 20170614
  Transmission Date: 20170830
  Serious: Yes (Hospitalization)
  Sender: FDA-Public Use
  Company Number: PL-AMGEN-POLCT2012064448

PATIENT
  Age: 63 Year
  Sex: Female
  Weight: 71.5 kg

DRUGS (9)
  1. AMLODIPINE [Concomitant]
     Active Substance: AMLODIPINE BESYLATE
     Dosage: 5 MG, UNK
     Route: 048
     Dates: start: 2002
  2. UROSEPT [Concomitant]
     Dosage: UNK
     Route: 048
     Dates: start: 20120718, end: 20120724
  3. PACLITAXEL. [Concomitant]
     Active Substance: PACLITAXEL
     Indication: OVARIAN CANCER
     Dosage: 120 MG, UNK
     Route: 042
     Dates: start: 20120606, end: 20120816
  4. SPIRONOLACTON [Concomitant]
     Active Substance: SPIRONOLACTONE
     Dosage: 12.5 MG, UNK
     Route: 048
     Dates: start: 20120705
  5. AMG 386 [Suspect]
     Active Substance: TREBANANIB
     Indication: OVARIAN CANCER
     Dosage: UNK
     Route: 065
     Dates: start: 20120606, end: 20120802
  6. CLEMASTINE [Concomitant]
     Active Substance: CLEMASTINE
     Dosage: 2 MG, UNK
     Route: 042
     Dates: start: 20120606
  7. ZOFRAN [Concomitant]
     Active Substance: ONDANSETRON HYDROCHLORIDE
     Dosage: 8 MG, UNK
     Route: 042
     Dates: start: 20120606
  8. DEXAVEN [Concomitant]
     Active Substance: DEXAMETHASONE
     Dosage: 20 MG, UNK
     Route: 042
     Dates: start: 20120606
  9. CIMETIDINA [Concomitant]
     Dosage: 300 MG, UNK
     Route: 042
     Dates: start: 20120606

REACTIONS (1)
  - Pleural effusion [Recovered/Resolved]

NARRATIVE: CASE EVENT DATE: 20120802
